FAERS Safety Report 11732179 (Version 1)
Quarter: 2015Q4

REPORT INFORMATION
  Report Type: Spontaneous
  Country: US (occurrence: US)
  Receive Date: 20151110
  Receipt Date: 20151110
  Transmission Date: 20160304
  Serious: No
  Sender: FDA-Public Use
  Company Number: US-ELI_LILLY_AND_COMPANY-US201204002788

PATIENT
  Sex: Female

DRUGS (1)
  1. FORTEO [Suspect]
     Active Substance: TERIPARATIDE
     Indication: OSTEOPOROSIS
     Dosage: 20 UG, QD

REACTIONS (8)
  - Paraesthesia [Unknown]
  - Headache [Recovering/Resolving]
  - Injection site erythema [Unknown]
  - Pain in jaw [Unknown]
  - Dysgeusia [Unknown]
  - Injection site bruising [Unknown]
  - Arthralgia [Recovering/Resolving]
  - Injection site mass [Unknown]
